FAERS Safety Report 14799948 (Version 1)
Quarter: 2018Q2

REPORT INFORMATION
  Report Type: Spontaneous
  Country: US (occurrence: US)
  Receive Date: 20180424
  Receipt Date: 20180424
  Transmission Date: 20180711
  Serious: No
  Sender: FDA-Public Use
  Company Number: US-GLAXOSMITHKLINE-US2018GSK067405

PATIENT
  Age: 30 Year
  Sex: Female

DRUGS (2)
  1. BRIVIACT [Suspect]
     Active Substance: BRIVARACETAM
     Indication: SEIZURE
  2. LAMICTAL [Suspect]
     Active Substance: LAMOTRIGINE
     Indication: SEIZURE
     Dosage: 150 MG, UNK

REACTIONS (4)
  - Vomiting [Unknown]
  - Drug ineffective [Unknown]
  - Urinary incontinence [Unknown]
  - Bite [Unknown]

NARRATIVE: CASE EVENT DATE: 201804
